FAERS Safety Report 8085447-7 (Version None)
Quarter: 2012Q1

REPORT INFORMATION
  Report Type: 
  Country: None (occurrence: None)
  Receive Date: 20120128
  Receipt Date: 20110408
  Transmission Date: 20120608
  Serious: No
  Sender: FDA-Public Use
  Company Number: US-ABBOTT-11P-163-0702870-00

PATIENT
  Age: 76 Year
  Sex: Male

DRUGS (7)
  1. VITAMIN D [Concomitant]
     Indication: PRODUCT USED FOR UNKNOWN INDICATION
     Dosage: EVERY DAY
     Route: 048
  2. METFFORMIN HYDROCHLORIDE [Concomitant]
     Indication: TYPE 2 DIABETES MELLITUS
     Dosage: EVERY DAY
  3. HUMIRA [Suspect]
     Indication: PSORIATIC ARTHROPATHY
     Dates: start: 20090201, end: 20100201
  4. TAMSULOSIN HCL [Concomitant]
     Indication: PROSTATIC DISORDER
     Dosage: 0.4 MG EVERY DAY
     Route: 048
  5. OMEPRAZOLE [Concomitant]
     Indication: PRODUCT USED FOR UNKNOWN INDICATION
     Dosage: EVERY DAY
     Route: 048
  6. IBUPROFEN [Concomitant]
     Indication: PAIN
     Dosage: 1-2 EVERY DAY
     Route: 048
  7. HUMIRA [Suspect]
     Dates: start: 20110101

REACTIONS (3)
  - COUGH [None]
  - DIABETES MELLITUS [None]
  - PSORIASIS [None]
